FAERS Safety Report 8901665 (Version 1)
Quarter: 2012Q4

REPORT INFORMATION
  Report Type: Spontaneous
  Country: US (occurrence: None)
  Receive Date: 20121108
  Receipt Date: 20121108
  Transmission Date: 20130627
  Serious: Yes (Life-Threatening, Hospitalization)
  Sender: FDA-Public Use
  Company Number: None

PATIENT
  Age: 65 Year
  Sex: Male
  Weight: 100 kg

DRUGS (1)
  1. WARFARIN [Suspect]
     Dosage: MG PO
     Route: 048
     Dates: start: 20100713, end: 20120411

REACTIONS (2)
  - Subdural haematoma [None]
  - Intracranial pressure increased [None]
